FAERS Safety Report 7009416-0 (Version None)
Quarter: 2010Q3

REPORT INFORMATION
  Report Type: 
  Country: None (occurrence: None)
  Receive Date: 20100923
  Receipt Date: 20100913
  Transmission Date: 20110219
  Serious: Yes (Other)
  Sender: FDA-Public Use
  Company Number: US-BAYER-201020194BCC

PATIENT
  Age: 69 Year
  Sex: Female
  Weight: 82 kg

DRUGS (1)
  1. RID COMPLETE ELIMINATION KIT [Suspect]
     Indication: SKIN DISORDER
     Route: 061
     Dates: start: 20100501, end: 20100901

REACTIONS (5)
  - AGEUSIA [None]
  - ANOSMIA [None]
  - ASTHENIA [None]
  - DECREASED APPETITE [None]
  - FATIGUE [None]
